FAERS Safety Report 8825604 (Version 1)
Quarter: 2012Q4

REPORT INFORMATION
  Report Type: 
  Country: US (occurrence: US)
  Receive Date: 20121004
  Receipt Date: 20121004
  Transmission Date: 20130627
  Serious: No
  Sender: FDA-Public Use
  Company Number: US-PFIZER INC-2012243349

PATIENT
  Age: 38 Year
  Sex: Female
  Weight: 59 kg

DRUGS (4)
  1. ZOLOFT [Suspect]
     Indication: OBSESSIVE-COMPULSIVE DISORDER
     Dosage: 200 mg, 1x/day
     Route: 048
     Dates: start: 2002, end: 2012
  2. ZOLOFT [Suspect]
     Dosage: 100 mg, 1x/day
     Route: 048
     Dates: start: 2012
  3. KLONOPIN [Concomitant]
     Indication: ANXIETY
     Dosage: UNK, as needed
  4. ATIVAN [Concomitant]
     Dosage: UNK

REACTIONS (1)
  - Dizziness [Not Recovered/Not Resolved]
